FAERS Safety Report 21172412 (Version 2)
Quarter: 2022Q3

REPORT INFORMATION
  Report Type: Spontaneous
  Country: BR (occurrence: BR)
  Receive Date: 20220804
  Receipt Date: 20220813
  Transmission Date: 20221027
  Serious: Yes (Other)
  Sender: FDA-Public Use
  Company Number: BR-NOVARTISPH-NVSC2022BR175180

PATIENT
  Age: 63 Year
  Sex: Female
  Weight: 58 kg

DRUGS (10)
  1. RIBOCICLIB [Suspect]
     Active Substance: RIBOCICLIB
     Indication: Breast cancer
     Dosage: 200 MG, TID (FIRST CYCLE, 3 TABLETS VIA ORAL A DAY)
     Route: 048
     Dates: start: 20210128
  2. RIBOCICLIB [Suspect]
     Active Substance: RIBOCICLIB
     Dosage: 600 MG, QD (SECOND CYCLE)
     Route: 048
  3. RIBOCICLIB [Suspect]
     Active Substance: RIBOCICLIB
     Dosage: 600 MG, QD (THIRD CYCLE)
     Route: 048
     Dates: start: 20210330
  4. LETROZOLE [Suspect]
     Active Substance: LETROZOLE
     Indication: Product used for unknown indication
     Dosage: UNK (FIRST CYCLE)
     Route: 065
     Dates: start: 20210128
  5. LETROZOLE [Suspect]
     Active Substance: LETROZOLE
     Dosage: UNK (SECOND CYCLE)
     Route: 065
  6. LETROZOLE [Suspect]
     Active Substance: LETROZOLE
     Dosage: UNK (THIRD CYCLE)
     Route: 065
     Dates: start: 20210330
  7. BENICAR [Concomitant]
     Active Substance: OLMESARTAN MEDOXOMIL
     Indication: Hypertension
     Dosage: UNK
     Route: 065
  8. AMILORIDE HYDROCHLORIDE\CHLORTHALIDONE [Concomitant]
     Active Substance: AMILORIDE HYDROCHLORIDE\CHLORTHALIDONE
     Indication: Hypertension
     Dosage: UNK
     Route: 065
  9. PROPRANOLOL HYDROCHLORIDE [Concomitant]
     Active Substance: PROPRANOLOL HYDROCHLORIDE
     Indication: Hypertension
     Dosage: UNK
     Route: 065
  10. SPIRONOLACTONE [Concomitant]
     Active Substance: SPIRONOLACTONE
     Indication: Hypertension
     Dosage: UNK
     Route: 065

REACTIONS (3)
  - Neutropenia [Recovered/Resolved]
  - Breast cancer [Unknown]
  - Malignant neoplasm progression [Unknown]

NARRATIVE: CASE EVENT DATE: 20210225
